FAERS Safety Report 8160342-3 (Version None)
Quarter: 2012Q1

REPORT INFORMATION
  Report Type: 
  Country: None (occurrence: None)
  Receive Date: 20120223
  Receipt Date: 20120210
  Transmission Date: 20120608
  Serious: Yes (Hospitalization)
  Sender: FDA-Public Use
  Company Number: GB-BAUSCH-2012BL001088

PATIENT
  Age: 33 Year
  Sex: Female

DRUGS (11)
  1. RITUXIMAB [Suspect]
     Route: 042
     Dates: start: 20100917, end: 20100924
  2. VINCRISTINE [Concomitant]
  3. DEXAMETHASONE [Concomitant]
  4. IMMUNE GLOBULIN (HUMAN) [Concomitant]
  5. DEXAMETHASONE [Suspect]
     Indication: ANTIEMETIC SUPPORTIVE CARE
     Route: 048
     Dates: start: 20100907, end: 20100910
  6. NORETHINDRONE [Suspect]
     Route: 048
     Dates: start: 20100922, end: 20100928
  7. TRANEXAMIC ACID [Suspect]
     Route: 048
     Dates: start: 20100922, end: 20100928
  8. ROMIPLOSTIM [Suspect]
     Indication: IDIOPATHIC THROMBOCYTOPENIC PURPURA
     Route: 058
     Dates: start: 20100920, end: 20100920
  9. ANTI-D IMMUNOGLOBULIN [Concomitant]
  10. LANSOPRAZOLE [Suspect]
     Indication: GASTROOESOPHAGEAL REFLUX PROPHYLAXIS
     Route: 048
     Dates: start: 20100907, end: 20100928
  11. IMMUNE GLOBULIN (HUMAN) [Suspect]
     Route: 042
     Dates: start: 20100922, end: 20100923

REACTIONS (6)
  - RASH MACULO-PAPULAR [None]
  - VAGINAL HAEMORRHAGE [None]
  - PURPURA [None]
  - RECTAL HAEMORRHAGE [None]
  - RASH ERYTHEMATOUS [None]
  - HAEMOGLOBIN DECREASED [None]
